FAERS Safety Report 8111022-1 (Version None)
Quarter: 2012Q1

REPORT INFORMATION
  Report Type: 
  Country: None (occurrence: None)
  Receive Date: 20120203
  Receipt Date: 20110218
  Transmission Date: 20120608
  Serious: No
  Sender: FDA-Public Use
  Company Number: US-GLAXOSMITHKLINE-A0914441A

PATIENT
  Age: 26 Year
  Sex: Female

DRUGS (4)
  1. LAMICTAL [Suspect]
     Indication: BIPOLAR DISORDER
     Dosage: 450MG AT NIGHT
     Route: 048
  2. CLONAZEPAM [Concomitant]
  3. FOCALIN [Concomitant]
  4. SERTRALINE HYDROCHLORIDE [Concomitant]

REACTIONS (1)
  - SOMNOLENCE [None]
